FAERS Safety Report 5467949-2 (Version None)
Quarter: 2007Q3

REPORT INFORMATION
  Report Type: 
  Country: None (occurrence: None)
  Receive Date: 20070924
  Receipt Date: 20070924
  Transmission Date: 20080115
  Serious: Yes (Other)
  Sender: FDA-Public Use
  Company Number: None

PATIENT
  Age: 24 Year
  Sex: Female

DRUGS (2)
  1. TB SKIN TEST [Suspect]
     Dates: start: 20070813
  2. ORTHO TRI CYCLEN LOW [Concomitant]

REACTIONS (6)
  - BODY TEMPERATURE INCREASED [None]
  - INJECTION SITE DISCOLOURATION [None]
  - INJECTION SITE PAIN [None]
  - INJECTION SITE SWELLING [None]
  - NECK PAIN [None]
  - PAIN IN EXTREMITY [None]
